FAERS Safety Report 11848967 (Version 2)
Quarter: 2016Q1

REPORT INFORMATION
  Report Type: Report from Study
  Country: NL (occurrence: NL)
  Receive Date: 20151218
  Receipt Date: 20160314
  Transmission Date: 20160526
  Serious: Yes (Hospitalization)
  Sender: FDA-Public Use
  Company Number: PHHY2015NL163118

PATIENT
  Age: 56 Year
  Sex: Female

DRUGS (1)
  1. SANDOSTATIN LAR DEPOT [Suspect]
     Active Substance: OCTREOTIDE ACETATE
     Indication: ACROMEGALY
     Dosage: 30 MG PER 2 ML, QMO (1 PER 4 WEEKS)
     Route: 030

REACTIONS (5)
  - Somnolence [Unknown]
  - Malaise [Recovering/Resolving]
  - Fatigue [Unknown]
  - Cholelithiasis [Unknown]
  - Blood cortisol decreased [Recovering/Resolving]

NARRATIVE: CASE EVENT DATE: 20151130
